FAERS Safety Report 23461417 (Version 2)
Quarter: 2024Q1

REPORT INFORMATION
  Report Type: Report from Study
  Country: CN (occurrence: CN)
  Receive Date: 20240131
  Receipt Date: 20240206
  Transmission Date: 20240410
  Serious: Yes (Hospitalization)
  Sender: FDA-Public Use
  Company Number: CN-VER-202400003

PATIENT
  Age: 72 Year
  Sex: Male
  Weight: 51 kg

DRUGS (6)
  1. TRIPTORELIN PAMOATE [Suspect]
     Active Substance: TRIPTORELIN PAMOATE
     Indication: Prostate cancer
     Route: 030
     Dates: start: 20230704, end: 20230704
  2. RUTIN [Concomitant]
     Active Substance: RUTIN
     Indication: Hypertension
     Dosage: 1 TABLET DAILY
     Route: 048
     Dates: start: 2022, end: 202306
  3. RUTIN [Concomitant]
     Active Substance: RUTIN
     Indication: Hypertension
     Dosage: 1 TABLET DAILY
     Route: 048
     Dates: start: 202307, end: 202309
  4. NIFEDIPINE [Concomitant]
     Active Substance: NIFEDIPINE
     Indication: Hypertension
     Dosage: CONTROLLED-RELEASE TABLETS, 1 TABLET DAILY
     Route: 048
     Dates: start: 202309
  5. RESERPINE [Concomitant]
     Active Substance: RESERPINE
     Indication: Hypertension
     Dosage: 1 TABLET (12 HR)
     Route: 048
     Dates: start: 2022, end: 202306
  6. RESERPINE [Concomitant]
     Active Substance: RESERPINE
     Indication: Hypertension
     Dosage: 1 TABLET (12 HR)
     Route: 048
     Dates: start: 202307, end: 202309

REACTIONS (1)
  - Coronary artery stenosis [Recovered/Resolved]

NARRATIVE: CASE EVENT DATE: 20240123
